FAERS Safety Report 21897151 (Version 1)
Quarter: 2023Q1

REPORT INFORMATION
  Report Type: Spontaneous
  Country: US (occurrence: None)
  Receive Date: 20230120
  Receipt Date: 20230120
  Transmission Date: 20230417
  Serious: No
  Sender: FDA-Public Use
  Company Number: None

PATIENT
  Sex: Female

DRUGS (1)
  1. OTEZLA [Suspect]
     Active Substance: APREMILAST
     Indication: Psoriasis
     Dosage: OTHER STRENGTH : 10/20/30M;?FREQUENCY : TWICE A DAY;?
     Route: 048
     Dates: start: 20221212

REACTIONS (1)
  - Therapeutic product effect delayed [None]
